FAERS Safety Report 8990614 (Version 1)
Quarter: 2012Q4

REPORT INFORMATION
  Report Type: Report from Study
  Country: US (occurrence: US)
  Receive Date: 20121228
  Receipt Date: 20121228
  Transmission Date: 20130627
  Serious: Yes (Life-Threatening, Other)
  Sender: FDA-Public Use
  Company Number: US-ROCHE-GNE256980

PATIENT
  Age: 33 Year
  Sex: Female
  Weight: 116.12 kg

DRUGS (7)
  1. OMALIZUMAB [Suspect]
     Indication: INFLAMMATION
     Route: 058
     Dates: start: 20080111
  2. AZMACORT [Concomitant]
     Indication: ASTHMA
     Dosage: 4 puff, bid, Dose=4 puff, Daily Dose=8 puff
     Route: 065
     Dates: start: 20071107
  3. ZYRTEC [Concomitant]
     Indication: HYPERSENSITIVITY
     Dosage: 10 mg, bid
     Route: 048
     Dates: start: 200711
  4. XOPENEX [Concomitant]
     Indication: PRODUCT USED FOR UNKNOWN INDICATION
  5. TOPAMAX [Concomitant]
  6. PROZAC [Concomitant]
  7. CRESTOR [Concomitant]

REACTIONS (1)
  - Anaphylactic reaction [Recovered/Resolved]
